FAERS Safety Report 13597244 (Version 1)
Quarter: 2017Q2

REPORT INFORMATION
  Report Type: Spontaneous
  Country: HR (occurrence: HR)
  Receive Date: 20170531
  Receipt Date: 20170531
  Transmission Date: 20170830
  Serious: Yes (Hospitalization)
  Sender: FDA-Public Use
  Company Number: HR-ASTRAZENECA-2017SE56524

PATIENT
  Sex: Male

DRUGS (8)
  1. BRUFEN [Suspect]
     Active Substance: IBUPROFEN
     Dosage: 800.0MG UNKNOWN
     Route: 048
     Dates: start: 20170103
  2. SEROQUEL [Suspect]
     Active Substance: QUETIAPINE FUMARATE
     Dosage: 1500.0MG UNKNOWN
     Route: 048
     Dates: start: 20170103
  3. CERSON [Suspect]
     Active Substance: NITRAZEPAM
     Dosage: 100.0MG UNKNOWN
     Route: 048
     Dates: start: 20170103
  4. VITAMIN B COMPLEX [Suspect]
     Active Substance: CYANOCOBALAMIN\DEXPANTHENOL\NIACINAMIDE\PYRIDOXINE HYDROCHLORIDE\RIBOFLAVIN 5^-PHOSPHATE SODIUM\THIAMINE HYDROCHLORIDE\VITAMIN B COMPLEX
     Route: 048
     Dates: start: 20170103
  5. AKINETON [Suspect]
     Active Substance: BIPERIDEN HYDROCHLORIDE
     Dosage: 60.0MG UNKNOWN
     Route: 048
     Dates: start: 20170103
  6. NORMABEL [Suspect]
     Active Substance: DIAZEPAM
     Dosage: 300.0MG UNKNOWN
     Route: 048
     Dates: start: 20170103
  7. LEPONEX [Suspect]
     Active Substance: CLOZAPINE
     Dosage: 550.0MG UNKNOWN
     Route: 048
     Dates: start: 20170103
  8. LEPONEX [Suspect]
     Active Substance: CLOZAPINE
     Dosage: 1000.0MG UNKNOWN
     Route: 048
     Dates: start: 20170103

REACTIONS (3)
  - Somnolence [Unknown]
  - Intentional overdose [Unknown]
  - Suicide attempt [Unknown]

NARRATIVE: CASE EVENT DATE: 20170103
